FAERS Safety Report 7735659-4 (Version None)
Quarter: 2011Q3

REPORT INFORMATION
  Report Type: 
  Country: None (occurrence: None)
  Receive Date: 20110907
  Receipt Date: 20110902
  Transmission Date: 20111222
  Serious: Yes (Hospitalization)
  Sender: FDA-Public Use
  Company Number: US-AMGEN-USASP2011042896

PATIENT
  Age: 39 Year
  Sex: Male
  Weight: 108.84 kg

DRUGS (11)
  1. NPLATE [Suspect]
     Indication: IDIOPATHIC THROMBOCYTOPENIC PURPURA
     Dosage: 3 MUG/KG, UNK
     Route: 058
     Dates: start: 20110708
  2. PREDNISONE [Concomitant]
     Dosage: 10 MG, QD
     Route: 048
     Dates: start: 20110328
  3. CYCLOBENZAPRINE [Concomitant]
     Dosage: 10 MG, Q8H
  4. ATRIPLA [Concomitant]
     Dosage: UNK UNK, QD
     Route: 048
  5. OXYCODONE HCL [Concomitant]
     Dosage: 5 MG, UNK
  6. NEURONTIN [Concomitant]
     Dosage: 600 MG, TID
     Route: 048
  7. CLARITHROMYCIN [Concomitant]
     Dosage: 500 MG, QD
     Route: 048
  8. FLUCONAZOLE [Concomitant]
     Dosage: 100 MG, QD
  9. SULFAMETHOXAZOLE AND TRIMETHOPRIM [Concomitant]
     Dosage: UNK UNK, QD
     Route: 048
  10. CORTICOSTEROIDS [Concomitant]
  11. ETHAMBUTOL [Concomitant]
     Dosage: 1200 MG, UNK

REACTIONS (10)
  - DECREASED APPETITE [None]
  - FATIGUE [None]
  - NAUSEA [None]
  - LIVER FUNCTION TEST ABNORMAL [None]
  - PAIN IN EXTREMITY [None]
  - DIARRHOEA [None]
  - WEIGHT DECREASED [None]
  - CONTUSION [None]
  - THROMBOCYTOPENIA [None]
  - VOMITING [None]
